APPROVED DRUG PRODUCT: CHOLESTYRAMINE
Active Ingredient: CHOLESTYRAMINE
Strength: EQ 4GM RESIN/SCOOPFUL
Dosage Form/Route: POWDER;ORAL
Application: A209597 | Product #002 | TE Code: AB
Applicant: PHARMOBEDIENT CONSULTING LLC
Approved: Mar 9, 2021 | RLD: No | RS: No | Type: RX